FAERS Safety Report 7731867-7 (Version None)
Quarter: 2011Q3

REPORT INFORMATION
  Report Type: 
  Country: None (occurrence: None)
  Receive Date: 20110906
  Receipt Date: 20110902
  Transmission Date: 20111222
  Serious: Yes (Other)
  Sender: FDA-Public Use
  Company Number: PT-PFIZER INC-2011177204

PATIENT
  Age: 35 Year
  Sex: Female
  Weight: 60 kg

DRUGS (1)
  1. ZITHROMAX [Suspect]
     Dosage: 500 MG, 1X/DAY
     Route: 048
     Dates: start: 20080101

REACTIONS (3)
  - URTICARIA [None]
  - OEDEMA PERIPHERAL [None]
  - DYSPNOEA [None]
